FAERS Safety Report 9669003 (Version 1)
Quarter: 2013Q4

REPORT INFORMATION
  Report Type: Spontaneous
  Country: US (occurrence: US)
  Receive Date: 20131105
  Receipt Date: 20131105
  Transmission Date: 20140711
  Serious: No
  Sender: FDA-Public Use
  Company Number: US-PFIZER INC-2013312354

PATIENT
  Age: 60 Year
  Sex: Female
  Weight: 64.9 kg

DRUGS (4)
  1. PREMPRO [Suspect]
     Indication: MENOPAUSAL SYMPTOMS
     Dosage: 2.5 MG, 1X/DAY
     Dates: start: 201304
  2. PREMPRO [Suspect]
     Indication: HOT FLUSH
  3. BONIVA [Concomitant]
     Indication: OSTEOPOROSIS
     Dosage: UNK
  4. CALCIUM [Concomitant]
     Indication: OSTEOPOROSIS
     Dosage: UNK, 1X/DAY

REACTIONS (1)
  - Alopecia [Not Recovered/Not Resolved]
